FAERS Safety Report 5110245-3 (Version None)
Quarter: 2006Q3

REPORT INFORMATION
  Report Type: 
  Country: None (occurrence: None)
  Receive Date: 20060921
  Receipt Date: 20060919
  Transmission Date: 20061208
  Serious: Yes (Other)
  Sender: FDA-Public Use
  Company Number: CA-GLAXOSMITHKLINE-A0620761A

PATIENT
  Age: 58 Year
  Sex: Male

DRUGS (2)
  1. KIVEXA [Suspect]
     Indication: DRUG USE FOR UNKNOWN INDICATION
     Route: 048
  2. ANTIRETROVIRAL MEDICATIONS [Concomitant]

REACTIONS (4)
  - BLISTER [None]
  - HAEMOGLOBIN INCREASED [None]
  - PORPHYRIA NON-ACUTE [None]
  - SKIN FRAGILITY [None]
